FAERS Safety Report 17746279 (Version 1)
Quarter: 2020Q2

REPORT INFORMATION
  Report Type: Spontaneous
  Country: DK (occurrence: DK)
  Receive Date: 20200505
  Receipt Date: 20200505
  Transmission Date: 20200714
  Serious: Yes (Hospitalization)
  Sender: FDA-Public Use
  Company Number: DK-MYLANLABS-2020M1043254

PATIENT
  Age: 35 Year
  Sex: Male

DRUGS (3)
  1. TRAMADOL. [Suspect]
     Active Substance: TRAMADOL
     Indication: PAIN
     Dosage: STYRKE: UKENDT. DOSIS: VARIERENDE.
     Dates: start: 2016, end: 201701
  2. OXYCODONE [Suspect]
     Active Substance: OXYCODONE
     Indication: PAIN
     Dosage: STYRKE: UKENDT. DOSIS: VARIERENDE.
     Dates: end: 2017
  3. MORPHINE [Suspect]
     Active Substance: MORPHINE
     Indication: PAIN
     Dosage: STYRKE: UKENDT. DOSIS: VARIERENDE.
     Dates: start: 20161009, end: 201701

REACTIONS (6)
  - Gastrointestinal hypomotility [Not Recovered/Not Resolved]
  - Constipation [Not Recovered/Not Resolved]
  - Food intolerance [Not Recovered/Not Resolved]
  - Abdominal pain [Not Recovered/Not Resolved]
  - Hypersensitivity [Not Recovered/Not Resolved]
  - Rectal haemorrhage [Not Recovered/Not Resolved]

NARRATIVE: CASE EVENT DATE: 201707
